FAERS Safety Report 17152280 (Version 2)
Quarter: 2021Q4

REPORT INFORMATION
  Report Type: Spontaneous
  Country: CA (occurrence: CA)
  Receive Date: 20191213
  Receipt Date: 20211105
  Transmission Date: 20220303
  Serious: Yes (Other)
  Sender: FDA-Public Use
  Company Number: CA-TOLMAR, INC.-19CA019590

PATIENT
  Sex: Male

DRUGS (2)
  1. ELIGARD [Suspect]
     Active Substance: LEUPROLIDE ACETATE
     Indication: Prostate cancer
     Dosage: 45 MG, Q6MONTHS
     Route: 058
  2. DOCETAXEL [Suspect]
     Active Substance: DOCETAXEL
     Indication: Prostate cancer
     Dosage: 20 MG/M2

REACTIONS (3)
  - Gastrointestinal toxicity [Not Recovered/Not Resolved]
  - Reproductive toxicity [Not Recovered/Not Resolved]
  - Urinary tract toxicity [Not Recovered/Not Resolved]
